FAERS Safety Report 8625571-0 (Version None)
Quarter: 2012Q3

REPORT INFORMATION
  Report Type: 
  Country: None (occurrence: None)
  Receive Date: 20120827
  Receipt Date: 20120813
  Transmission Date: 20120928
  Serious: Yes (Other)
  Sender: FDA-Public Use
  Company Number: ES-MYLANLABS-2012S1016809

PATIENT
  Age: 62 Year
  Sex: Female

DRUGS (6)
  1. CYCLOPHOSPHAMIDE [Suspect]
     Indication: BREAST CANCER
     Dosage: 600 MG/M2 Q21D (4 CYCLES)
     Route: 065
  2. DEXAMETHASONE [Concomitant]
     Dosage: 16 MG/DAY FOR 3D
     Route: 065
  3. DOXORUBICIN HYDROCHLORIDE [Suspect]
     Indication: BREAST CANCER
     Dosage: 60 MG/M2 Q21D (4 CYCLES)
     Route: 065
  4. CHLORHEXIDINE GLUCONATE [Concomitant]
     Route: 048
  5. ANASTROZOLE [Suspect]
     Indication: BREAST CANCER
     Dosage: 1 MG/DAY
     Route: 065
  6. OMEPRAZOLE [Concomitant]
     Route: 065

REACTIONS (1)
  - OSTEONECROSIS [None]
